FAERS Safety Report 10027597 (Version 3)
Quarter: 2014Q1

REPORT INFORMATION
  Report Type: Spontaneous
  Country: US (occurrence: None)
  Receive Date: 20140219
  Receipt Date: 20140327
  Transmission Date: 20141002
  Serious: Yes (Other)
  Sender: FDA-Public Use
  Company Number: ADR-2014-00250

PATIENT
  Age: 54 Year
  Sex: Female

DRUGS (2)
  1. BACLOFEN [Suspect]
     Indication: MUSCLE SPASTICITY
  2. MORPHINE [Suspect]

REACTIONS (7)
  - Drug withdrawal syndrome [None]
  - Parosmia [None]
  - Stress [None]
  - Drug effect decreased [None]
  - Musculoskeletal disorder [None]
  - Parosmia [None]
  - Inadequate analgesia [None]
